FAERS Safety Report 8975588 (Version 1)
Quarter: 2012Q4

REPORT INFORMATION
  Report Type: 
  Country: US (occurrence: US)
  Receive Date: 20121219
  Receipt Date: 20121219
  Transmission Date: 20130627
  Serious: No
  Sender: FDA-Public Use
  Company Number: US-AMGEN-USASP2012068499

PATIENT
  Age: 64 Year
  Sex: Female
  Weight: 75.74 kg

DRUGS (19)
  1. PROLIA [Suspect]
     Indication: OSTEOPOROSIS POSTMENOPAUSAL
     Dosage: 60 mg, q6mo
     Route: 058
     Dates: start: 201202
  2. PROLIA [Suspect]
     Indication: OSTEOPOROSIS
  3. CELEBREX [Concomitant]
     Dosage: 200 mg, bid
     Route: 048
  4. VICODIN ES [Concomitant]
     Dosage: UNK UNK, tid
  5. EFFEXOR XR [Concomitant]
     Dosage: 75 mg, tid
  6. CRESTOR [Concomitant]
     Dosage: 5 mg, qd
     Route: 048
  7. FOLVITE                            /00024201/ [Concomitant]
     Dosage: 1 mg, qd
     Route: 048
  8. ONE-A-DAY /00156401/ [Concomitant]
  9. CALTRATE + D                       /00944201/ [Concomitant]
     Dosage: UNK UNK, bid
     Route: 048
  10. NEUROTIN                           /01003001/ [Concomitant]
     Dosage: 900 mg, qhs
     Route: 048
  11. ALLEGRA [Concomitant]
     Dosage: 180 mg, qd
     Route: 048
  12. IRON [Concomitant]
     Dosage: 65 mg, UNK
  13. PRILOSEC                           /00661201/ [Concomitant]
     Dosage: 20 mg, qd
     Route: 048
  14. ZANAFLEX [Concomitant]
     Dosage: 2 mg, prn
     Route: 048
  15. BENTYL [Concomitant]
     Dosage: 20 mg, q6h
     Route: 048
  16. THERAGRAN-M                        /06012901/ [Concomitant]
     Dosage: UNK UNK, qd
     Route: 048
  17. CO-ENZYME Q10 [Concomitant]
     Dosage: 100 mg, qd
     Route: 048
  18. FERROUS SULFATE [Concomitant]
     Dosage: 325 mg, tid
     Route: 048
  19. PHENERGAN                          /00033001/ [Concomitant]
     Dosage: 25 mg, q6h
     Route: 048

REACTIONS (11)
  - Arthralgia [Recovered/Resolved]
  - Musculoskeletal stiffness [Recovered/Resolved]
  - Pain [Recovered/Resolved]
  - Discomfort [Recovered/Resolved]
  - Limb discomfort [Not Recovered/Not Resolved]
  - Swelling [Unknown]
  - Myalgia [Unknown]
  - Musculoskeletal discomfort [Unknown]
  - Gait disturbance [Unknown]
  - Neck pain [Unknown]
  - Pain in extremity [Recovering/Resolving]
